FAERS Safety Report 9131009 (Version 1)
Quarter: 2013Q1

REPORT INFORMATION
  Report Type: Spontaneous
  Country: JP (occurrence: JP)
  Receive Date: 20130301
  Receipt Date: 20130301
  Transmission Date: 20140127
  Serious: Yes (Other)
  Sender: FDA-Public Use
  Company Number: JP-BRISTOL-MYERS SQUIBB COMPANY-17401860

PATIENT
  Age: 87 Year
  Sex: Female
  Weight: 44 kg

DRUGS (4)
  1. ORENCIA FOR INJ 250 MG/VIAL [Suspect]
     Indication: RHEUMATOID ARTHRITIS
     Route: 042
     Dates: start: 20110112
  2. METHOTREXATE [Concomitant]
     Dosage: ONGOING
     Route: 048
     Dates: start: 20101227
  3. PREDNISOLONE [Concomitant]
     Dosage: ONGOING
     Route: 048
  4. LOXONIN [Concomitant]
     Dosage: ONGOING
     Route: 048

REACTIONS (1)
  - Cerebral haemorrhage [Recovering/Resolving]
